FAERS Safety Report 8135047-5 (Version None)
Quarter: 2012Q1

REPORT INFORMATION
  Report Type: 
  Country: None (occurrence: None)
  Receive Date: 20120214
  Receipt Date: 20120206
  Transmission Date: 20120608
  Serious: Yes (Hospitalization)
  Sender: FDA-Public Use
  Company Number: US-BAYER-201028984NA

PATIENT
  Age: 36 Year
  Sex: Female
  Weight: 72.109 kg

DRUGS (22)
  1. IBUPROFEN [Concomitant]
  2. MULTI-VITAMIN [Concomitant]
  3. CYCLOBENZAPRINE [Concomitant]
     Dosage: 10 MG, UNK
  4. YAZ [Suspect]
  5. TYLENOL ES [Concomitant]
     Dosage: 1000 MG, UNK
  6. BENTYL [Concomitant]
  7. ASTELIN [Concomitant]
     Indication: MULTIPLE ALLERGIES
     Dosage: UNK
     Dates: start: 20070101
  8. COLACE [Concomitant]
     Dosage: 100 MG, BID
  9. NASONEX [Concomitant]
     Dosage: 50 UNK, UNK
  10. LIDODERM [Concomitant]
  11. ATENOLOL [Concomitant]
  12. NEXIUM [Concomitant]
     Dosage: 40 MG, UNK
  13. CYMBALTA [Concomitant]
  14. ACETAMINOPHEN AND HYDROCODONE BITARTRATE [Concomitant]
  15. MACROBID [Concomitant]
     Dosage: 100 MG, UNK
  16. LOESTRIN 1.5/30 [Concomitant]
  17. AMITRIPTYLINE HCL [Concomitant]
     Dosage: UNK
     Route: 048
     Dates: start: 20070819
  18. VENTOLIN [Concomitant]
     Indication: ASTHMA
     Dosage: UNK
  19. YAZ [Suspect]
     Indication: PREMENSTRUAL SYNDROME
     Dosage: UNK
     Dates: start: 20060401, end: 20091105
  20. MECLIZINE [Concomitant]
  21. RANITIDINE [Concomitant]
     Dosage: 150 MG, UNK
  22. MIRALAX [Concomitant]
     Dosage: 17 UNK, UNK

REACTIONS (3)
  - INCISIONAL HERNIA [None]
  - CHOLECYSTITIS ACUTE [None]
  - CHOLELITHIASIS [None]
